FAERS Safety Report 7803505-6 (Version None)
Quarter: 2011Q4

REPORT INFORMATION
  Report Type: 
  Country: None (occurrence: None)
  Receive Date: 20111007
  Receipt Date: 20110920
  Transmission Date: 20120403
  Serious: Yes (Life-Threatening, Hospitalization)
  Sender: FDA-Public Use
  Company Number: JP-ASTRAZENECA-2011SE59502

PATIENT
  Age: 97 Year
  Sex: Female

DRUGS (6)
  1. PLAVIX [Concomitant]
     Indication: CARDIOVASCULAR EVENT PROPHYLAXIS
     Route: 048
     Dates: start: 20110125, end: 20110611
  2. DIGOXIN [Concomitant]
     Indication: ATRIAL FIBRILLATION
     Route: 065
     Dates: start: 20110125, end: 20110611
  3. CANDESARTAN CILEXETIL [Suspect]
     Indication: HYPERTENSION
     Route: 048
     Dates: start: 20110125, end: 20110611
  4. ASPIRIN [Concomitant]
     Indication: CARDIOVASCULAR EVENT PROPHYLAXIS
     Route: 048
     Dates: start: 20110125, end: 20110611
  5. COROPRES [Concomitant]
     Indication: CARDIAC FAILURE
     Route: 048
     Dates: start: 20110125, end: 20110611
  6. ALDACTONE [Suspect]
     Indication: CARDIAC FAILURE
     Route: 048
     Dates: start: 20110125, end: 20110611

REACTIONS (3)
  - HYPERKALAEMIA [None]
  - HYPOTENSION [None]
  - ATRIOVENTRICULAR BLOCK SECOND DEGREE [None]
